FAERS Safety Report 25099965 (Version 1)
Quarter: 2025Q1

REPORT INFORMATION
  Report Type: Report from Study
  Country: US (occurrence: US)
  Receive Date: 20250320
  Receipt Date: 20250320
  Transmission Date: 20250408
  Serious: Yes (Hospitalization, Other)
  Sender: AUROBINDO
  Company Number: US-MLMSERVICE-20250227-PI431059-00030-1

PATIENT
  Age: 55 Year
  Sex: Female

DRUGS (6)
  1. IBUPROFEN [Suspect]
     Active Substance: IBUPROFEN
     Indication: Headache
     Route: 048
  2. IBUPROFEN [Suspect]
     Active Substance: IBUPROFEN
     Indication: Ear pain
  3. AMOXICILLIN [Suspect]
     Active Substance: AMOXICILLIN
     Indication: Cerumen impaction
     Route: 048
  4. AMOXICILLIN [Suspect]
     Active Substance: AMOXICILLIN
     Indication: Otitis media
  5. OFLOXACIN [Suspect]
     Active Substance: OFLOXACIN
     Indication: Otitis media
     Route: 065
  6. OFLOXACIN [Suspect]
     Active Substance: OFLOXACIN
     Indication: Cerumen impaction

REACTIONS (3)
  - Meningitis aseptic [Recovering/Resolving]
  - Drug ineffective [Unknown]
  - Intentional product misuse [Unknown]
